FAERS Safety Report 7743861-0 (Version None)
Quarter: 2011Q3

REPORT INFORMATION
  Report Type: 
  Country: None (occurrence: None)
  Receive Date: 20110912
  Receipt Date: 20110831
  Transmission Date: 20111222
  Serious: Yes (Hospitalization)
  Sender: FDA-Public Use
  Company Number: US-GLAXOSMITHKLINE-A0899057A

PATIENT
  Age: 48 Year
  Sex: Female
  Weight: 113.6 kg

DRUGS (4)
  1. ACCUPRIL [Concomitant]
  2. AVANDIA [Suspect]
     Indication: DIABETES MELLITUS
     Dosage: 8MG PER DAY
     Route: 048
     Dates: start: 20000731, end: 20030104
  3. CLONIDINE [Concomitant]
  4. INSULIN [Concomitant]

REACTIONS (4)
  - ACUTE PULMONARY OEDEMA [None]
  - ARTERIOSCLEROSIS [None]
  - CEREBROVASCULAR ACCIDENT [None]
  - CARDIAC FAILURE CONGESTIVE [None]
